FAERS Safety Report 6840278-8 (Version None)
Quarter: 2010Q3

REPORT INFORMATION
  Report Type: 
  Country: None (occurrence: None)
  Receive Date: 20100714
  Receipt Date: 20100709
  Transmission Date: 20110219
  Serious: Yes (Disabling, Other)
  Sender: FDA-Public Use
  Company Number: CHPA2010DE11335

PATIENT
  Age: 62 Year
  Sex: Female

DRUGS (1)
  1. NICOTINELL TTS (NCH) [Suspect]
     Indication: SMOKING CESSATION THERAPY
     Dosage: 30 MG, QD
     Route: 062

REACTIONS (2)
  - BLINDNESS [None]
  - PHOTOPHOBIA [None]
